APPROVED DRUG PRODUCT: NICARDIPINE HYDROCHLORIDE IN 0.83% SODIUM CHLORIDE
Active Ingredient: NICARDIPINE HYDROCHLORIDE
Strength: 40MG/200ML (0.2MG/ML)
Dosage Form/Route: INJECTABLE;INTRAVENOUS
Application: A203978 | Product #002 | TE Code: AP
Applicant: INFORLIFE SA
Approved: Apr 17, 2024 | RLD: No | RS: No | Type: RX